FAERS Safety Report 18371129 (Version 2)
Quarter: 2020Q4

REPORT INFORMATION
  Report Type: Spontaneous
  Country: IT (occurrence: IT)
  Receive Date: 20201012
  Receipt Date: 20201019
  Transmission Date: 20210114
  Serious: Yes (Hospitalization)
  Sender: FDA-Public Use
  Company Number: NVSC2020IT270029

PATIENT
  Age: 58 Year
  Sex: Female

DRUGS (8)
  1. COUMADIN [Concomitant]
     Active Substance: WARFARIN SODIUM
     Indication: ATRIAL FIBRILLATION
     Dosage: 1 DF
     Route: 048
  2. LUVION [Concomitant]
     Indication: HYPERTENSION
     Dosage: 1 DF, QD
     Route: 048
  3. ENAPREN [Concomitant]
     Active Substance: ENALAPRIL MALEATE
     Indication: HYPERTENSION
     Dosage: 1 DF, QD
     Route: 048
  4. TEGRETOL [Suspect]
     Active Substance: CARBAMAZEPINE
     Dosage: 2 DF, TOTAL (STRENGTH: 200 MG)
     Route: 048
     Dates: start: 20180927, end: 20180927
  5. KEPPRA [Concomitant]
     Active Substance: LEVETIRACETAM
     Indication: PARTIAL SEIZURES
     Dosage: 1250 MG, QD
     Route: 048
  6. TEGRETOL [Suspect]
     Active Substance: CARBAMAZEPINE
     Indication: PARTIAL SEIZURES
     Dosage: 2 DF, TOTAL (STRENGTH: 400 MG)
     Route: 048
     Dates: start: 20180927, end: 20180927
  7. DILATREND [Concomitant]
     Active Substance: CARVEDILOL
     Indication: HYPERTENSION
     Dosage: 1 DF, QD
     Route: 048
  8. LASIX [Concomitant]
     Active Substance: FUROSEMIDE
     Indication: HYPERTENSION
     Dosage: 2 DF, QD
     Route: 048

REACTIONS (8)
  - Paraesthesia [Recovering/Resolving]
  - Somnolence [Recovering/Resolving]
  - Vertigo [Recovering/Resolving]
  - Asthenia [Recovering/Resolving]
  - International normalised ratio increased [Recovering/Resolving]
  - Dysarthria [Recovering/Resolving]
  - Gait disturbance [Recovering/Resolving]
  - Drug abuse [Recovering/Resolving]

NARRATIVE: CASE EVENT DATE: 20180927
